FAERS Safety Report 10932289 (Version 1)
Quarter: 2015Q1

REPORT INFORMATION
  Report Type: Spontaneous
  Country: US (occurrence: None)
  Receive Date: 20150318
  Receipt Date: 20150318
  Transmission Date: 20150721
  Serious: Yes (Death)
  Sender: FDA-Public Use
  Company Number: INT_00718_2015

PATIENT

DRUGS (4)
  1. CHEMORADIATION [Suspect]
     Active Substance: UNSPECIFIED INGREDIENT
     Indication: OESOPHAGEAL CARCINOMA
     Dosage: [50.4 GY 1.8 GY/FRACTION]
  2. CISPLATIN (HQ SPECIALTY) [Suspect]
     Active Substance: CISPLATIN
     Indication: OESOPHAGEAL CARCINOMA
     Dosage: 1 HOUR INFUSION ON DAYS 1-5 AND 29-33 FOR 2 CYCLES] (NOT OTHERWISE SPECIFIED)
     Route: 042
  3. 5-FLUOROURACIL [Suspect]
     Active Substance: FLUOROURACIL
     Indication: OESOPHAGEAL CARCINOMA
     Dosage: CONTINUOUS INFUSION ON DAYS 1-5 AND  29-33 FOR 2 CYCLES (NOT OTHEWISE SPECIFIED),
     Route: 042
  4. PACLITAXEL (HQ SPECIALTY) [Suspect]
     Active Substance: PACLITAXEL
     Indication: OESOPHAGEAL CARCINOMA
     Dosage: 2 HOUR INFUSION ON DAYS 1 AND 29 FOR 2 CYCLES (NOT OTHERWISE SPECIFIED)
     Route: 042

REACTIONS (1)
  - Pneumonitis [None]
